FAERS Safety Report 8190964-5 (Version None)
Quarter: 2012Q1

REPORT INFORMATION
  Report Type: 
  Country: None (occurrence: None)
  Receive Date: 20120307
  Receipt Date: 20120227
  Transmission Date: 20120608
  Serious: Yes (Hospitalization)
  Sender: FDA-Public Use
  Company Number: US-ACTELION-A-NJ2011-54724

PATIENT

DRUGS (4)
  1. TRACLEER [Suspect]
     Indication: PULMONARY ARTERIAL HYPERTENSION
     Dosage: UNK
     Route: 048
     Dates: start: 20090930
  2. VENTAVIS [Concomitant]
     Indication: PULMONARY ARTERIAL HYPERTENSION
     Dosage: UNK
     Route: 055
     Dates: start: 20110930
  3. OXYGEN [Concomitant]
  4. COUMADIN [Concomitant]

REACTIONS (6)
  - GOUT [None]
  - CARDIAC FAILURE CONGESTIVE [None]
  - TRANSFUSION [None]
  - HAEMOGLOBIN DECREASED [None]
  - FALL [None]
  - DYSPNOEA [None]
